FAERS Safety Report 9013541 (Version 1)
Quarter: 2013Q1

REPORT INFORMATION
  Report Type: Spontaneous
  Country: US (occurrence: None)
  Receive Date: 20130107
  Receipt Date: 20130107
  Transmission Date: 20140127
  Serious: No
  Sender: FDA-Public Use
  Company Number: None

PATIENT
  Age: 30 Year
  Sex: Female
  Weight: 53.07 kg

DRUGS (1)
  1. LEVOTHYROXINE [Suspect]
     Indication: RASH
     Dosage: 0.05MG 1 QD PO
     Route: 048
     Dates: start: 20121009

REACTIONS (1)
  - Rash [None]
